FAERS Safety Report 4847099-6 (Version None)
Quarter: 2005Q4

REPORT INFORMATION
  Report Type: 
  Country: None (occurrence: None)
  Receive Date: 20051205
  Receipt Date: 20051122
  Transmission Date: 20060501
  Serious: Yes (Other)
  Sender: FDA-Public Use
  Company Number: 2005S1000335

PATIENT
  Age: 68 Year
  Sex: Male

DRUGS (1)
  1. SORIATANE [Suspect]
     Dosage: PO
     Route: 048

REACTIONS (1)
  - PULMONARY FIBROSIS [None]
